FAERS Safety Report 17194389 (Version 1)
Quarter: 2019Q4

REPORT INFORMATION
  Report Type: Report from Study
  Country: None (occurrence: US)
  Receive Date: 20191224
  Receipt Date: 20191224
  Transmission Date: 20200122
  Serious: Yes (Other)
  Sender: FDA-Public Use
  Company Number: US-ABBVIE-19K-163-2903873-00

PATIENT
  Sex: Female
  Weight: 66.74 kg

DRUGS (2)
  1. HUMIRA [Suspect]
     Active Substance: ADALIMUMAB
     Indication: RHEUMATOID ARTHRITIS
     Route: 058
     Dates: start: 20180617, end: 20180829
  2. HUMIRA [Suspect]
     Active Substance: ADALIMUMAB
     Route: 058
     Dates: start: 20191008

REACTIONS (2)
  - Injection site pain [Unknown]
  - Osteoarthritis [Unknown]

NARRATIVE: CASE EVENT DATE: 2019
